FAERS Safety Report 22585356 (Version 1)
Quarter: 2023Q2

REPORT INFORMATION
  Report Type: Spontaneous
  Country: CA (occurrence: CA)
  Receive Date: 20230610
  Receipt Date: 20230610
  Transmission Date: 20230722
  Serious: Yes (Life-Threatening, Other)
  Sender: FDA-Public Use
  Company Number: CA-MYLANLABS-2023M1060327

PATIENT
  Age: 56 Year
  Sex: Female

DRUGS (1)
  1. SERTRALINE [Suspect]
     Active Substance: SERTRALINE HYDROCHLORIDE
     Indication: Depression
     Dosage: 25 MILLIGRAM, QD (1 EVERY 1 DAYS)
     Route: 048

REACTIONS (3)
  - Atrial fibrillation [Unknown]
  - Dyspnoea [Unknown]
  - Syncope [Unknown]
